FAERS Safety Report 7914939-3 (Version None)
Quarter: 2011Q4

REPORT INFORMATION
  Report Type: 
  Country: None (occurrence: None)
  Receive Date: 20111115
  Receipt Date: 20111107
  Transmission Date: 20120403
  Serious: Yes (Death, Hospitalization)
  Sender: FDA-Public Use
  Company Number: US-ELI_LILLY_AND_COMPANY-09-02-18170

PATIENT
  Sex: Male
  Weight: 69.7 kg

DRUGS (10)
  1. PANTOPRAZOLE [Concomitant]
     Dosage: 40 MG, UNK
     Dates: start: 20091001, end: 20091005
  2. FOLIC ACID [Concomitant]
     Indication: MEDICAL DIET
     Dosage: 1 MG, QD
     Dates: start: 20090801, end: 20091005
  3. DEXAMETHASONE [Concomitant]
     Dosage: 8 MG, QD
     Route: 048
  4. WELLBUTRIN [Concomitant]
     Indication: ANXIETY
     Dosage: 150 MG, QD
     Dates: start: 20091001, end: 20091005
  5. ASCORBIC ACID [Concomitant]
     Indication: VITAMIN SUPPLEMENTATION
     Dosage: UNK
     Route: 048
     Dates: start: 20090501, end: 20091005
  6. PROCHLORPERAZINE [Concomitant]
     Indication: NON-SMALL CELL LUNG CANCER
     Dosage: UNK
     Dates: start: 20090930, end: 20091005
  7. ACETAMINOPHEN [Concomitant]
     Indication: PAIN
     Dosage: 650 MG, UNK
     Dates: start: 20091001, end: 20091005
  8. PEMETREXED [Suspect]
     Indication: NON-SMALL CELL LUNG CANCER METASTATIC
     Dosage: 500 MG/M2, OTHER
     Route: 042
     Dates: start: 20090914, end: 20090914
  9. OXYCODONE HCL [Concomitant]
     Indication: PAIN
     Route: 048
  10. VITAMIN B COMPLEX CAP [Concomitant]
     Dosage: UNK
     Dates: start: 20090501, end: 20091005

REACTIONS (3)
  - NEOPLASM PROGRESSION [None]
  - PNEUMONIA [None]
  - DYSPNOEA [None]
